FAERS Safety Report 4582872-3 (Version None)
Quarter: 2005Q1

REPORT INFORMATION
  Report Type: 
  Country: None (occurrence: None)
  Receive Date: 20050121
  Receipt Date: 20041027
  Transmission Date: 20050727
  Serious: No
  Sender: FDA-Public Use
  Company Number: 2004233191US

PATIENT
  Age: 45 Year
  Sex: Female
  Weight: 54.4 kg

DRUGS (4)
  1. INSPRA [Suspect]
     Indication: BARTTER'S SYNDROME
     Dosage: 25 MG, BID
     Dates: start: 20040820
  2. POTASSIUM CHLORIDE [Concomitant]
  3. MAGNESIUM [Concomitant]
  4. ZETIA [Concomitant]

REACTIONS (13)
  - ABDOMINAL DISTENSION [None]
  - ABDOMINAL PAIN UPPER [None]
  - BLOOD PRESSURE DECREASED [None]
  - BREAST ENGORGEMENT [None]
  - BREAST PAIN [None]
  - DIARRHOEA [None]
  - DIZZINESS [None]
  - FATIGUE [None]
  - FEELING HOT [None]
  - FLATULENCE [None]
  - HEADACHE [None]
  - MUSCLE SPASMS [None]
  - OLIGOMENORRHOEA [None]
